FAERS Safety Report 18733152 (Version 2)
Quarter: 2021Q2

REPORT INFORMATION
  Report Type: Report from Study
  Country: None (occurrence: CO)
  Receive Date: 20210112
  Receipt Date: 20210421
  Transmission Date: 20210717
  Serious: Yes (Other)
  Sender: FDA-Public Use
  Company Number: CO-ABBVIE-20K-036-3325830-00

PATIENT
  Age: 52 Year
  Sex: Female
  Weight: 54 kg

DRUGS (5)
  1. SULFASALAZINE. [Concomitant]
     Active Substance: SULFASALAZINE
     Indication: ANKYLOSING SPONDYLITIS
  2. SULFASALAZINE. [Concomitant]
     Active Substance: SULFASALAZINE
     Indication: CROHN^S DISEASE
     Route: 048
     Dates: start: 2013
  3. HUMIRA [Suspect]
     Active Substance: ADALIMUMAB
     Indication: CROHN^S DISEASE
     Route: 058
     Dates: end: 20201221
  4. HUMIRA [Suspect]
     Active Substance: ADALIMUMAB
     Indication: CROHN^S DISEASE
     Route: 058
     Dates: start: 20130517
  5. AZATHIOPRINE. [Concomitant]
     Active Substance: AZATHIOPRINE
     Indication: CROHN^S DISEASE
     Route: 048
     Dates: start: 2013

REACTIONS (19)
  - Vomiting [Not Recovered/Not Resolved]
  - Skin exfoliation [Recovering/Resolving]
  - Hyperhidrosis [Not Recovered/Not Resolved]
  - Hypersensitivity [Recovering/Resolving]
  - Headache [Recovered/Resolved]
  - Skin haemorrhage [Recovering/Resolving]
  - Malaise [Recovered/Resolved]
  - Influenza [Recovered/Resolved]
  - Malaise [Not Recovered/Not Resolved]
  - Night sweats [Recovered/Resolved]
  - Nausea [Unknown]
  - Skin lesion [Recovering/Resolving]
  - Pyrexia [Not Recovered/Not Resolved]
  - Ulcer [Recovering/Resolving]
  - Skin burning sensation [Recovering/Resolving]
  - Headache [Not Recovered/Not Resolved]
  - Oropharyngeal pain [Recovered/Resolved]
  - Pharyngitis [Not Recovered/Not Resolved]
  - Oral candidiasis [Not Recovered/Not Resolved]

NARRATIVE: CASE EVENT DATE: 2019
